FAERS Safety Report 17973290 (Version 5)
Quarter: 2020Q3

REPORT INFORMATION
  Report Type: Spontaneous
  Country: JP (occurrence: JP)
  Receive Date: 20200702
  Receipt Date: 20200922
  Transmission Date: 20201103
  Serious: Yes (Other)
  Sender: FDA-Public Use
  Company Number: JP-PFIZER INC-2020252999

PATIENT
  Age: 68 Year
  Sex: Male

DRUGS (17)
  1. LEVOLEUCOVORIN CALCIUM. [Suspect]
     Active Substance: LEVOLEUCOVORIN CALCIUM
     Dosage: 297 MG, CYCLIC
     Dates: start: 201802
  2. 5?FLUOROURACIL [FLUOROURACIL] [Suspect]
     Active Substance: FLUOROURACIL
     Dosage: 595 MG, CYCLIC
     Dates: start: 201802
  3. 5?FLUOROURACIL [FLUOROURACIL] [Suspect]
     Active Substance: FLUOROURACIL
     Dosage: 583 MG, CYCLIC
  4. 5?FLUOROURACIL [FLUOROURACIL] [Suspect]
     Active Substance: FLUOROURACIL
     Dosage: 604 MG, CYCLIC
  5. PANITUMUMAB [Concomitant]
     Active Substance: PANITUMUMAB
     Dosage: 304 MG
  6. LEVOLEUCOVORIN CALCIUM. [Suspect]
     Active Substance: LEVOLEUCOVORIN CALCIUM
     Dosage: 302 MG, CYCLIC
  7. PANITUMUMAB [Concomitant]
     Active Substance: PANITUMUMAB
     Dosage: 294 MG
     Dates: start: 201802
  8. IRINOTECAN HCL [Suspect]
     Active Substance: IRINOTECAN HYDROCHLORIDE
     Dosage: 223 MG, CYCLIC
     Dates: start: 201802
  9. PREGABALIN. [Concomitant]
     Active Substance: PREGABALIN
     Indication: SPINAL OSTEOARTHRITIS
     Dosage: UNK
  10. OXALIPLATIN. [Suspect]
     Active Substance: OXALIPLATIN
     Dosage: 100 MG, CYCLIC
  11. LEVOLEUCOVORIN CALCIUM. [Suspect]
     Active Substance: LEVOLEUCOVORIN CALCIUM
     Dosage: 291 MG, CYCLIC
  12. PANITUMUMAB [Concomitant]
     Active Substance: PANITUMUMAB
     Dosage: 280 MG
  13. OXALIPLATIN. [Suspect]
     Active Substance: OXALIPLATIN
     Dosage: 90 MG, CYCLIC
  14. 5?FLUOROURACIL [FLUOROURACIL] [Suspect]
     Active Substance: FLUOROURACIL
     Dosage: 3499 MG, CYCLIC
  15. 5?FLUOROURACIL [FLUOROURACIL] [Suspect]
     Active Substance: FLUOROURACIL
     Dosage: 3620 MG, CYCLIC
  16. 5?FLUOROURACIL [FLUOROURACIL] [Suspect]
     Active Substance: FLUOROURACIL
     Dosage: 3570 MG, CYCLIC
     Dates: start: 201802
  17. OXALIPLATIN. [Suspect]
     Active Substance: OXALIPLATIN
     Dosage: 123 MG, CYCLIC

REACTIONS (1)
  - Neuropathy peripheral [Unknown]
